FAERS Safety Report 5320540-0 (Version None)
Quarter: 2007Q2

REPORT INFORMATION
  Report Type: 
  Country: None (occurrence: None)
  Receive Date: 20070509
  Receipt Date: 20070501
  Transmission Date: 20071010
  Serious: Yes (Other)
  Sender: FDA-Public Use
  Company Number: US-PFIZER INC-2007035036

PATIENT
  Sex: Female
  Weight: 95.454 kg

DRUGS (3)
  1. CELEBREX [Suspect]
     Indication: CARPAL TUNNEL SYNDROME
  2. TYLENOL [Concomitant]
  3. ALEVE [Concomitant]

REACTIONS (4)
  - ARTHRITIS [None]
  - CHEST DISCOMFORT [None]
  - SWELLING [None]
  - THROMBOSIS [None]
